FAERS Safety Report 14900596 (Version 3)
Quarter: 2019Q1

REPORT INFORMATION
  Report Type: Spontaneous
  Country: US (occurrence: US)
  Receive Date: 20180516
  Receipt Date: 20190227
  Transmission Date: 20190417
  Serious: No
  Sender: FDA-Public Use
  Company Number: US-PFIZER INC-2018196777

PATIENT
  Age: 74 Year
  Sex: Male
  Weight: 104.33 kg

DRUGS (2)
  1. CELEBREX [Suspect]
     Active Substance: CELECOXIB
     Indication: ARTHRALGIA
     Dosage: UNK
     Dates: start: 20180509
  2. CELEBREX [Suspect]
     Active Substance: CELECOXIB
     Dosage: 20 MG, 1X/DAY
     Dates: start: 2014

REACTIONS (1)
  - Night sweats [Not Recovered/Not Resolved]

NARRATIVE: CASE EVENT DATE: 20180509
